FAERS Safety Report 4947183-2 (Version None)
Quarter: 2006Q1

REPORT INFORMATION
  Report Type: 
  Country: None (occurrence: None)
  Receive Date: 20060313
  Receipt Date: 20060301
  Transmission Date: 20060701
  Serious: Yes (Other)
  Sender: FDA-Public Use
  Company Number: 2006030436

PATIENT
  Age: 71 Year
  Sex: Female
  Weight: 81.6475 kg

DRUGS (8)
  1. LIPITOR [Suspect]
     Indication: BLOOD CHOLESTEROL INCREASED
     Dosage: 10 MG (10 MG, 1 IN 1 D) ORAL
     Route: 048
  2. FLUOXETINE [Suspect]
     Indication: DEPRESSION
     Dates: start: 20050101, end: 20050101
  3. ACETYLSALICYLIC ACID SRT [Concomitant]
  4. TRIAMTERENE AND HYDROCHLOROTHIAZID ^HARRIS^ (HYDROCHLOROTHIAZIDE, TRIA [Concomitant]
  5. AVAPRO [Concomitant]
  6. CALTRATE (CALCIUM CARBONATE) [Concomitant]
  7. THERAGRAN-M (MINERALS NOS, VITAMINS NOS) [Concomitant]
  8. ADVIL [Concomitant]

REACTIONS (4)
  - BREAST CANCER [None]
  - DEPRESSION [None]
  - FATIGUE [None]
  - KNEE ARTHROPLASTY [None]
